FAERS Safety Report 20063419 (Version 1)
Quarter: 2021Q4

REPORT INFORMATION
  Report Type: Spontaneous
  Country: ES (occurrence: ES)
  Receive Date: 20211112
  Receipt Date: 20211112
  Transmission Date: 20220303
  Serious: Yes (Hospitalization)
  Sender: FDA-Public Use
  Company Number: None

PATIENT
  Age: 63 Year
  Sex: Male

DRUGS (1)
  1. SILDENAFIL CITRATE [Suspect]
     Active Substance: SILDENAFIL CITRATE
     Indication: Self-medication
     Dosage: UNK, AS NEEDED (AS NECESSARY)
     Route: 048
     Dates: start: 20211027, end: 20211027

REACTIONS (2)
  - Ischaemic stroke [Recovering/Resolving]
  - Self-medication [Unknown]

NARRATIVE: CASE EVENT DATE: 20211027
